FAERS Safety Report 7284183-4 (Version None)
Quarter: 2011Q1

REPORT INFORMATION
  Report Type: 
  Country: None (occurrence: None)
  Receive Date: 20110209
  Receipt Date: 20110128
  Transmission Date: 20110831
  Serious: Yes (Hospitalization, Other)
  Sender: FDA-Public Use
  Company Number: US-CELGENEUS-163-C5013-11011633

PATIENT
  Sex: Male
  Weight: 65.83 kg

DRUGS (42)
  1. CC-5013\PLACEBO [Suspect]
     Route: 048
     Dates: start: 20100225, end: 20100304
  2. SOLU-MEDROL [Concomitant]
     Route: 051
     Dates: start: 20100305, end: 20100306
  3. SOLU-MEDROL [Concomitant]
     Route: 051
     Dates: start: 20100307, end: 20100307
  4. NEUPOGEN [Concomitant]
     Route: 058
     Dates: start: 20100305, end: 20100307
  5. BISACODYL [Concomitant]
     Route: 048
     Dates: start: 20100304, end: 20100307
  6. MAGNESIUM HYDROXIDE [Concomitant]
     Route: 048
     Dates: start: 20100304, end: 20100307
  7. TYLENOL-500 [Concomitant]
     Dosage: 325-650MG
     Route: 048
     Dates: start: 20100304, end: 20100307
  8. NEXIUM [Concomitant]
     Route: 051
     Dates: start: 20100304, end: 20100307
  9. COMPAZINE [Concomitant]
     Route: 065
  10. VANCOMYCIN [Concomitant]
     Route: 065
     Dates: start: 20100304, end: 20100306
  11. CC-5013\PLACEBO [Suspect]
     Route: 048
     Dates: start: 20100511, end: 20100519
  12. PREDNISONE [Suspect]
     Route: 048
     Dates: start: 20100307, end: 20100307
  13. ZOSYN [Concomitant]
     Route: 051
     Dates: start: 20100304, end: 20100307
  14. MORPHINE SULFATE [Concomitant]
     Route: 051
     Dates: start: 20100305, end: 20100305
  15. NITROGLYCERIN [Concomitant]
     Route: 060
     Dates: start: 20100304, end: 20100307
  16. POTASSIUM [Concomitant]
     Route: 065
     Dates: start: 20100304, end: 20100307
  17. CALCIUM GLUCONATE/DEXTROSE [Concomitant]
     Route: 051
     Dates: start: 20100304, end: 20100307
  18. PREDNISONE [Suspect]
     Route: 048
     Dates: start: 20100204
  19. DOCETAXEL [Suspect]
     Route: 065
     Dates: start: 20100225
  20. SOLU-MEDROL [Concomitant]
     Route: 051
     Dates: start: 20100306, end: 20100307
  21. CALCIUM +D [Concomitant]
     Route: 048
     Dates: start: 20100307, end: 20100307
  22. ALBUTEROL SULFATE AND IPRATROPIUM BROMIDE [Concomitant]
     Dosage: 0.5/2.5
     Route: 065
     Dates: start: 20100305, end: 20100307
  23. ALBUTEROL SULFATE [Concomitant]
     Route: 065
     Dates: start: 20100304, end: 20100305
  24. DIPENHYDRAMINE [Concomitant]
     Dosage: 25-50MG
     Route: 048
     Dates: start: 20100304, end: 20100307
  25. FLOMAX [Concomitant]
     Route: 065
  26. OXYGEN [Concomitant]
     Route: 055
  27. PREDNISONE [Suspect]
     Route: 048
     Dates: start: 20100225
  28. FLUCONAZOLE [Concomitant]
     Route: 065
  29. PHENAZOPYRIDINE HCL TAB [Concomitant]
     Route: 065
  30. MAGNESIUM [Concomitant]
     Route: 065
     Dates: start: 20100304, end: 20100306
  31. DILAUDID [Concomitant]
     Dosage: 0.5-1MG
     Route: 065
     Dates: start: 20100304, end: 20100306
  32. DOCETAXEL [Suspect]
     Indication: PROSTATE CANCER
     Route: 065
     Dates: start: 20100204
  33. SODIUM CHLORIDE [Concomitant]
     Dosage: 100ML/HR
     Route: 048
     Dates: start: 20100307, end: 20100307
  34. DIPENHYDRAMINE [Concomitant]
     Dosage: 25-50MG
     Route: 051
     Dates: start: 20100304, end: 20100307
  35. NYSTATIN [Concomitant]
     Route: 048
  36. CC-5013\PLACEBO [Suspect]
     Indication: PROSTATE CANCER
     Route: 048
     Dates: start: 20100204
  37. PREDNISONE [Suspect]
     Route: 048
     Dates: start: 20100511
  38. DOCETAXEL [Suspect]
     Route: 065
     Dates: start: 20100511, end: 20100511
  39. COLACE [Concomitant]
     Route: 048
     Dates: start: 20100304, end: 20100307
  40. VICODIN [Concomitant]
     Dosage: 5-500MG
     Route: 048
     Dates: start: 20100304, end: 20100307
  41. XANAX [Concomitant]
     Route: 048
     Dates: start: 20100304, end: 20100307
  42. SODIUM BIPHOSPHATE [Concomitant]
     Route: 065
     Dates: start: 20100304, end: 20100307

REACTIONS (6)
  - NEUTROPENIA [None]
  - CHOLELITHIASIS [None]
  - CHILLS [None]
  - ABDOMINAL PAIN [None]
  - URINARY TRACT INFECTION [None]
  - DEHYDRATION [None]
